FAERS Safety Report 8407824-4 (Version None)
Quarter: 2012Q2

REPORT INFORMATION
  Report Type: 
  Country: None (occurrence: None)
  Receive Date: 20120604
  Receipt Date: 20120523
  Transmission Date: 20120825
  Serious: Yes (Other)
  Sender: FDA-Public Use
  Company Number: US-BRISTOL-MYERS SQUIBB COMPANY-16620007

PATIENT
  Age: 73 Year
  Sex: Male

DRUGS (5)
  1. HUMALOG [Suspect]
     Indication: TYPE 2 DIABETES MELLITUS
  2. ASPIRIN [Suspect]
     Dosage: 1DF: }100MG 18AUG2011,04MAY2011,18OCT2011,09FEB2012+07MAY2012
     Dates: start: 20110818
  3. BLINDED: PLACEBO [Suspect]
     Indication: TYPE 2 DIABETES MELLITUS
     Dates: start: 20110505
  4. SAXAGLIPTIN [Suspect]
     Indication: TYPE 2 DIABETES MELLITUS
     Dates: start: 20110505
  5. LANTUS [Suspect]
     Indication: TYPE 2 DIABETES MELLITUS

REACTIONS (1)
  - URINE ALBUMIN/CREATININE RATIO INCREASED [None]
